FAERS Safety Report 16430380 (Version 2)
Quarter: 2019Q3

REPORT INFORMATION
  Report Type: Spontaneous
  Country: US (occurrence: US)
  Receive Date: 20190614
  Receipt Date: 20190814
  Transmission Date: 20191004
  Serious: No
  Sender: FDA-Public Use
  Company Number: US-GLAXOSMITHKLINE-US2019AMR103216

PATIENT
  Sex: Female
  Weight: 59 kg

DRUGS (1)
  1. NUCALA [Suspect]
     Active Substance: MEPOLIZUMAB
     Indication: ASTHMA
     Dosage: UNK
     Route: 058
     Dates: start: 20190506

REACTIONS (4)
  - Rash erythematous [Recovered/Resolved]
  - Rash pruritic [Recovered/Resolved]
  - Rash papular [Recovered/Resolved]
  - Rash generalised [Recovered/Resolved]
